FAERS Safety Report 7177805-X (Version None)
Quarter: 2010Q4

REPORT INFORMATION
  Report Type: 
  Country: None (occurrence: None)
  Receive Date: 20101123
  Receipt Date: 20100806
  Transmission Date: 20110411
  Serious: No
  Sender: FDA-Public Use
  Company Number: 016878

PATIENT
  Sex: Female
  Weight: 88.5 kg

DRUGS (2)
  1. CIMZIA [Suspect]
     Indication: CROHN'S DISEASE
     Dosage: (2 INJECTIONS OF UNSPECIFIED DOSAGE MONTHLY SUBCUTANEOUS)
     Route: 058
     Dates: start: 20090601, end: 20100805
  2. CIPROFLOXACIN [Concomitant]

REACTIONS (2)
  - DRUG ADMINISTERED AT INAPPROPRIATE SITE [None]
  - FISTULA [None]
